FAERS Safety Report 21609495 (Version 2)
Quarter: 2022Q4

REPORT INFORMATION
  Report Type: Spontaneous
  Country: SG (occurrence: SG)
  Receive Date: 20221117
  Receipt Date: 20221209
  Transmission Date: 20230112
  Serious: Yes (Other)
  Sender: FDA-Public Use
  Company Number: SG-TEVA-2022-SG-2826291

PATIENT
  Age: 14 Year
  Sex: Male

DRUGS (10)
  1. PREDNISOLONE [Suspect]
     Active Substance: PREDNISOLONE
     Indication: Autoimmune hepatitis
     Dosage: 5 MILLIGRAM DAILY;
     Route: 065
  2. PREDNISOLONE [Suspect]
     Active Substance: PREDNISOLONE
     Indication: Cholangitis sclerosing
  3. CHOLECALCIFEROL [Suspect]
     Active Substance: CHOLECALCIFEROL
     Indication: Hypophosphataemia
     Dosage: DOSAGE: 1000 UNITS/DAY FOLLOWED BY 2000 UNITS/DAY AND THEN 4000 UNITS/DAY
     Route: 065
  4. SODIUM PHOSPHATE, MONOBASIC, ANHYDROUS [Suspect]
     Active Substance: SODIUM PHOSPHATE, MONOBASIC, ANHYDROUS
     Indication: Hypophosphataemia
     Dosage: DOSE: 0.8 MMOL/KG/DAY
     Route: 048
  5. ERGOCALCIFEROL [Suspect]
     Active Substance: ERGOCALCIFEROL
     Indication: Hypophosphataemia
     Dosage: DOSAGE: 100000 UNITS EVERY 3 DAYS
     Route: 065
  6. CALCITRIOL [Suspect]
     Active Substance: CALCITRIOL
     Indication: Hypophosphataemia
     Dosage: .5 MICROGRAM DAILY;
     Route: 065
  7. ZOLEDRONIC ACID [Suspect]
     Active Substance: ZOLEDRONIC ACID
     Indication: Hypophosphataemia
     Dosage: CYCLICAL
     Route: 042
  8. AZATHIOPRINE [Concomitant]
     Active Substance: AZATHIOPRINE
     Indication: Autoimmune hepatitis
     Dosage: DAILY
     Route: 065
  9. AZATHIOPRINE [Concomitant]
     Active Substance: AZATHIOPRINE
     Indication: Cholangitis sclerosing
  10. CALCIUM CARBONATE [Concomitant]
     Active Substance: CALCIUM CARBONATE
     Indication: Mineral supplementation
     Dosage: 2.5 GRAM DAILY;
     Route: 065

REACTIONS (7)
  - Spinal fracture [Recovering/Resolving]
  - Osteodystrophy [Recovering/Resolving]
  - Liver disorder [Recovering/Resolving]
  - Hypophosphataemia [Recovering/Resolving]
  - Hyperphosphaturia [Recovering/Resolving]
  - Fibroblast growth factor 23 increased [Recovered/Resolved]
  - Drug ineffective [Unknown]
